FAERS Safety Report 7594565-9 (Version None)
Quarter: 2011Q2

REPORT INFORMATION
  Report Type: 
  Country: None (occurrence: None)
  Receive Date: 20110628
  Receipt Date: 20110621
  Transmission Date: 20111010
  Serious: Yes (Hospitalization, Other)
  Sender: FDA-Public Use
  Company Number: CIP11000505

PATIENT
  Age: 78 Year
  Sex: Female

DRUGS (26)
  1. SIMVASTATIN [Concomitant]
  2. NYSTATIN [Concomitant]
  3. SULFAMETHOXAZOLE AND TRIMETHOPRIM [Concomitant]
  4. PRILOSEC [Concomitant]
  5. FOSAMAX [Suspect]
     Dosage: 70 MG ONCE WEEKLY, ORAL; 70 MG ONCE WEEKLY, ORAL
     Route: 048
     Dates: start: 20020107, end: 20050101
  6. FOSAMAX [Suspect]
     Dosage: 70 MG ONCE WEEKLY, ORAL; 70 MG ONCE WEEKLY, ORAL
     Route: 048
     Dates: start: 20091028, end: 20100318
  7. MELOXICAM [Concomitant]
  8. CALCIUM + VIT D (CALCIUM, COLECALCIFEROL) [Concomitant]
  9. ACETAMINOPHEN [Concomitant]
  10. FISH OIL [Concomitant]
  11. ACTONEL [Suspect]
     Dosage: 35 MG ONCE WEEKLY, ORAL
     Route: 048
     Dates: start: 20070301, end: 20090101
  12. LOTEPREDNOL ETABONATE [Concomitant]
  13. DETROL LA [Concomitant]
  14. FORTEO [Concomitant]
  15. CADUET [Concomitant]
  16. PLENDIL [Concomitant]
  17. ACTONEL WITH CALCIUM (COPACKAGED) [Suspect]
     Dosage: 1 TABLET, REGIMEN /ORAL
     Route: 048
     Dates: start: 20070315, end: 20081015
  18. ALREX [Concomitant]
  19. LEVOXYL [Concomitant]
  20. TRIAMTERENE AND HYDROCHLOROTHIAZIDE [Concomitant]
  21. POTASSIUM CHLORIDE [Concomitant]
  22. ASPIRIN [Concomitant]
  23. ZANTAC [Concomitant]
  24. FEXOFENADINE [Concomitant]
  25. VITAMINS NOS [Concomitant]
  26. NIACIN [Concomitant]

REACTIONS (24)
  - FRACTURE DISPLACEMENT [None]
  - PAIN IN EXTREMITY [None]
  - BURSITIS [None]
  - SINUSITIS [None]
  - FEMUR FRACTURE [None]
  - IMPAIRED HEALING [None]
  - NEOPLASM [None]
  - NO THERAPEUTIC RESPONSE [None]
  - STRESS FRACTURE [None]
  - TENDERNESS [None]
  - BONE FORMATION INCREASED [None]
  - GROIN PAIN [None]
  - DYSPEPSIA [None]
  - MUSCLE ATROPHY [None]
  - PATHOLOGICAL FRACTURE [None]
  - INFECTION [None]
  - ABDOMINAL PAIN UPPER [None]
  - VAGINAL LESION [None]
  - FALL [None]
  - GAIT DISTURBANCE [None]
  - ARTHRALGIA [None]
  - RHINITIS ALLERGIC [None]
  - PAIN [None]
  - LIMB INJURY [None]
